FAERS Safety Report 8647758 (Version 4)
Quarter: 2013Q1

REPORT INFORMATION
  Report Type: Report from Study
  Country: JP (occurrence: JP)
  Receive Date: 20120703
  Receipt Date: 20130305
  Transmission Date: 20140127
  Serious: Yes (Other)
  Sender: FDA-Public Use
  Company Number: PHHY2011JP108719

PATIENT
  Sex: 0
  Weight: 60 kg

DRUGS (5)
  1. AFINITOR [Suspect]
     Indication: METASTATIC RENAL CELL CARCINOMA
     Dosage: 10 MG, UNK
     Route: 048
     Dates: start: 20110902, end: 20110930
  2. AFINITOR [Suspect]
     Dosage: 5 MG DAILY
     Route: 048
     Dates: start: 20110930
  3. MERCAZOLE [Concomitant]
     Dosage: 5 MG, UNK
     Route: 048
     Dates: start: 20111104
  4. DIOVAN [Concomitant]
     Dosage: 40 MG, DAILY
     Route: 048
  5. LIPITOR                                 /NET/ [Concomitant]
     Dosage: 10 MG, DAILY
     Route: 048

REACTIONS (4)
  - Glomerular filtration rate decreased [Unknown]
  - Blood creatine increased [Recovered/Resolved]
  - Urine output decreased [Unknown]
  - Decreased appetite [Unknown]
